FAERS Safety Report 23384743 (Version 2)
Quarter: 2024Q1

REPORT INFORMATION
  Report Type: Spontaneous
  Country: JP (occurrence: JP)
  Receive Date: 20240109
  Receipt Date: 20240119
  Transmission Date: 20240410
  Serious: Yes (Other)
  Sender: FDA-Public Use
  Company Number: JP-NEUROCRINE BIOSCIENCES INC.-2023NBI11506

PATIENT
  Age: 6 Decade
  Sex: Male

DRUGS (4)
  1. VALBENAZINE [Suspect]
     Active Substance: VALBENAZINE
     Indication: Tardive dyskinesia
     Dosage: UNK
     Route: 048
  2. LATUDA [Concomitant]
     Active Substance: LURASIDONE HYDROCHLORIDE
  3. LEVETIRACETAM [Concomitant]
     Active Substance: LEVETIRACETAM
  4. ROZEREM [Concomitant]
     Active Substance: RAMELTEON

REACTIONS (1)
  - Tardive dyskinesia [Unknown]
